FAERS Safety Report 17324821 (Version 2)
Quarter: 2020Q1

REPORT INFORMATION
  Report Type: Report from Study
  Country: None (occurrence: US)
  Receive Date: 20200127
  Receipt Date: 20200303
  Transmission Date: 20200409
  Serious: Yes (Hospitalization, Other)
  Sender: FDA-Public Use
  Company Number: US-ABBVIE-19K-163-2702433-00

PATIENT
  Age: 72 Year
  Sex: Male

DRUGS (14)
  1. HUMIRA [Suspect]
     Active Substance: ADALIMUMAB
     Indication: UVEITIS
     Route: 058
     Dates: start: 2018, end: 201906
  2. HUMIRA [Suspect]
     Active Substance: ADALIMUMAB
     Route: 058
     Dates: start: 20200116
  3. TAMOXIFEN [Concomitant]
     Active Substance: TAMOXIFEN
     Indication: BREAST CANCER
     Dates: start: 201907
  4. MELOXICAM. [Concomitant]
     Active Substance: MELOXICAM
     Indication: INFLAMMATION
  5. VYZULTA [Concomitant]
     Active Substance: LATANOPROSTENE BUNOD
     Indication: OCULAR DISCOMFORT
  6. LISINOPRIL. [Concomitant]
     Active Substance: LISINOPRIL
     Indication: HYPERTENSION
  7. HUMIRA [Suspect]
     Active Substance: ADALIMUMAB
     Route: 058
  8. TRAMADOL. [Concomitant]
     Active Substance: TRAMADOL
     Indication: PAIN
  9. RHOPRESSA [Concomitant]
     Active Substance: NETARSUDIL MESYLATE
     Indication: OCULAR DISCOMFORT
  10. AZOPT [Concomitant]
     Active Substance: BRINZOLAMIDE
     Indication: OCULAR DISCOMFORT
  11. NEXIUM [Concomitant]
     Active Substance: ESOMEPRAZOLE MAGNESIUM
     Indication: GASTROOESOPHAGEAL REFLUX DISEASE
  12. OXYCODONE [Concomitant]
     Active Substance: OXYCODONE
     Indication: ANALGESIC THERAPY
  13. TIMOLOL. [Concomitant]
     Active Substance: TIMOLOL
     Indication: OCULAR DISCOMFORT
  14. SIMVASTATIN. [Concomitant]
     Active Substance: SIMVASTATIN
     Indication: BLOOD CHOLESTEROL INCREASED

REACTIONS (7)
  - Injection site pain [Recovered/Resolved]
  - Visual impairment [Recovered/Resolved]
  - Prostatomegaly [Recovering/Resolving]
  - Wrong technique in product usage process [Recovered/Resolved]
  - Osteoarthritis [Recovered/Resolved]
  - Breast cancer male [Recovered/Resolved]
  - Incorrect dose administered [Recovered/Resolved]

NARRATIVE: CASE EVENT DATE: 2019
